FAERS Safety Report 13677826 (Version 1)
Quarter: 2017Q2

REPORT INFORMATION
  Report Type: Spontaneous
  Country: US (occurrence: US)
  Receive Date: 20170621
  Receipt Date: 20170621
  Transmission Date: 20170830
  Serious: Yes (Other)
  Sender: FDA-Public Use
  Company Number: None

PATIENT
  Sex: Female

DRUGS (1)
  1. IBRANCE [Suspect]
     Active Substance: PALBOCICLIB
     Dosage: 100MG 1 DAILY FOR 21 DAYS OF 28 DAYS CYCLE
     Dates: start: 20161130, end: 20170620

REACTIONS (1)
  - Gastric neoplasm [None]
